FAERS Safety Report 4450823-8 (Version None)
Quarter: 2004Q3

REPORT INFORMATION
  Report Type: 
  Country: None (occurrence: None)
  Receive Date: 20040916
  Receipt Date: 20011002
  Transmission Date: 20050211
  Serious: Yes (Other)
  Sender: FDA-Public Use
  Company Number: US-BRISTOL-MYERS SQUIBB COMPANY-11033222

PATIENT
  Sex: Female

DRUGS (11)
  1. STADOL [Suspect]
     Route: 045
  2. STADOL [Suspect]
     Route: 042
  3. HYDROCODONE + ACETAMINOPHEN [Concomitant]
  4. PROCHLORPERAZINE [Concomitant]
     Route: 054
  5. PHRENILIN FORTE [Concomitant]
  6. MAXIFED [Concomitant]
  7. LORTAB [Concomitant]
     Dosage: DOSING: 10/500MG TABLET
  8. AMITRIPTYLINE HCL [Concomitant]
  9. SONATA [Concomitant]
  10. WELLBUTRIN SR [Concomitant]
  11. AUGMENTIN [Concomitant]
     Dosage: DOSING: 875-125 TABLET

REACTIONS (1)
  - DEPENDENCE [None]
